FAERS Safety Report 23709803 (Version 3)
Quarter: 2025Q2

REPORT INFORMATION
  Report Type: Report from Study
  Country: DE (occurrence: DE)
  Receive Date: 20240405
  Receipt Date: 20250514
  Transmission Date: 20250716
  Serious: Yes (Hospitalization, Other)
  Sender: ABBVIE
  Company Number: DE-ABBVIE-5706006

PATIENT
  Age: 54 Year
  Sex: Male
  Weight: 83 kg

DRUGS (8)
  1. CARBIDOPA\LEVODOPA [Suspect]
     Active Substance: CARBIDOPA\LEVODOPA
     Indication: Parkinson^s disease
     Route: 050
     Dates: start: 20230201
  2. CARBIDOPA\LEVODOPA [Suspect]
     Active Substance: CARBIDOPA\LEVODOPA
  3. CHOLECALCIFEROL [Concomitant]
     Active Substance: CHOLECALCIFEROL
     Indication: Product used for unknown indication
     Dosage: 20.000 IU
  4. MAGNESIUM [Concomitant]
     Active Substance: MAGNESIUM
     Indication: Product used for unknown indication
  5. RAMIPRIL [Concomitant]
     Active Substance: RAMIPRIL
     Indication: Product used for unknown indication
  6. ONGENTYS [Concomitant]
     Active Substance: OPICAPONE
     Indication: Product used for unknown indication
  7. VITAMIN B12 [Concomitant]
     Active Substance: CYANOCOBALAMIN
     Indication: Product used for unknown indication
  8. BENSERAZIDE HYDROCHLORIDE\LEVODOPA [Concomitant]
     Active Substance: BENSERAZIDE HYDROCHLORIDE\LEVODOPA
     Indication: Product used for unknown indication

REACTIONS (31)
  - Illness [Unknown]
  - Therapeutic product effect variable [Unknown]
  - Postoperative wound infection [Unknown]
  - Depressed mood [Unknown]
  - Bradyphrenia [Unknown]
  - Cognitive disorder [Unknown]
  - Illusion [Unknown]
  - Nightmare [Unknown]
  - Muscle spasms [Unknown]
  - Nocturia [Unknown]
  - Parkinsonian gait [Unknown]
  - Hypokinesia [Unknown]
  - Hyperkinesia [Unknown]
  - Bradykinesia [Unknown]
  - Gait disturbance [Unknown]
  - Hallucination, visual [Unknown]
  - Deep brain stimulation [Unknown]
  - On and off phenomenon [Unknown]
  - Dyskinesia [Unknown]
  - Dysarthria [Unknown]
  - Reduced facial expression [Unknown]
  - Dysdiadochokinesis [Unknown]
  - Movement disorder [Unknown]
  - Balance disorder [Unknown]
  - Disturbance in attention [Unknown]
  - Fatigue [Unknown]
  - Asthenia [Recovering/Resolving]
  - Visual impairment [Unknown]
  - Dry mouth [Unknown]
  - Balance disorder [Unknown]
  - Muscle rigidity [Unknown]

NARRATIVE: CASE EVENT DATE: 20230301
